FAERS Safety Report 7752576 (Version 2)
Quarter: 2018Q4

REPORT INFORMATION
  Report Type: Spontaneous
  Country: ES (occurrence: ES)
  Receive Date: 20110107
  Receipt Date: 20181211
  Transmission Date: 20190205
  Serious: Yes (Other)
  Sender: FDA-Public Use
  Company Number: PHHY2010ES88066

PATIENT
  Age: 27 Year
  Sex: Male

DRUGS (1)
  1. ZOLPIDEM [Suspect]
     Active Substance: ZOLPIDEM\ZOLPIDEM TARTRATE
     Indication: INSOMNIA
     Dosage: 10 MG, UNK (BEFORE BED TIME)
     Route: 065

REACTIONS (3)
  - Sleep-related eating disorder [Recovered/Resolved]
  - Parasomnia [Recovered/Resolved]
  - Abnormal sleep-related event [Recovered/Resolved]
